FAERS Safety Report 23166733 (Version 3)
Quarter: 2023Q4

REPORT INFORMATION
  Report Type: Report from Study
  Country: US (occurrence: US)
  Receive Date: 20231109
  Receipt Date: 20231226
  Transmission Date: 20240109
  Serious: No
  Sender: FDA-Public Use
  Company Number: US-ALXN-A202311530

PATIENT
  Sex: Male

DRUGS (2)
  1. ULTOMIRIS [Suspect]
     Active Substance: RAVULIZUMAB-CWVZ
     Indication: Myasthenia gravis
     Dosage: UNK
     Route: 065
  2. MESTINON [Concomitant]
     Active Substance: PYRIDOSTIGMINE BROMIDE
     Indication: Product used for unknown indication
     Dosage: UNK
     Route: 065

REACTIONS (8)
  - Hypoacusis [Unknown]
  - Tremor [Unknown]
  - Dysphagia [Unknown]
  - Eyelid ptosis [Recovered/Resolved]
  - Fatigue [Unknown]
  - Weight increased [Unknown]
  - Malaise [Unknown]
  - Blepharospasm [Unknown]

NARRATIVE: CASE EVENT DATE: 20230831
